FAERS Safety Report 19190757 (Version 1)
Quarter: 2021Q2

REPORT INFORMATION
  Report Type: Spontaneous
  Country: US (occurrence: US)
  Receive Date: 20210428
  Receipt Date: 20210428
  Transmission Date: 20210717
  Serious: Yes (Hospitalization)
  Sender: FDA-Public Use
  Company Number: None

PATIENT
  Age: 63 Year
  Sex: Male
  Weight: 74 kg

DRUGS (1)
  1. ROSUVASTATIN. [Suspect]
     Active Substance: ROSUVASTATIN
     Indication: HYPERLIPIDAEMIA
     Route: 048
     Dates: start: 20180618, end: 20200202

REACTIONS (8)
  - Rhabdomyolysis [None]
  - Blood creatine increased [None]
  - Blood potassium decreased [None]
  - Protein total decreased [None]
  - Blood albumin decreased [None]
  - Blood glucose increased [None]
  - Blood urea increased [None]
  - Hepatic enzyme increased [None]

NARRATIVE: CASE EVENT DATE: 20200201
